FAERS Safety Report 5145367-4 (Version None)
Quarter: 2006Q4

REPORT INFORMATION
  Report Type: 
  Country: None (occurrence: None)
  Receive Date: 20061101
  Receipt Date: 20061023
  Transmission Date: 20070319
  Serious: Yes (Other)
  Sender: FDA-Public Use
  Company Number: 062-C5013-06101054

PATIENT
  Sex: Male

DRUGS (1)
  1. CC-5013 (LENALIDOMIDE) (CAPSULES) [Suspect]
     Indication: DRUG USE FOR UNKNOWN INDICATION
     Dosage: 25 MG, 1 IN 1 D, ORAL
     Route: 048

REACTIONS (4)
  - BONE MARROW FAILURE [None]
  - DERMATITIS BULLOUS [None]
  - ERYSIPELAS [None]
  - SEPSIS [None]
